FAERS Safety Report 6466567-7 (Version None)
Quarter: 2009Q4

REPORT INFORMATION
  Report Type: 
  Country: None (occurrence: None)
  Receive Date: 20091201
  Receipt Date: 20091201
  Transmission Date: 20100525
  Serious: Yes (Hospitalization)
  Sender: FDA-Public Use
  Company Number: None

PATIENT
  Sex: Male
  Weight: 90.5 kg

DRUGS (1)
  1. PRAVASTATIN [Suspect]
     Indication: HYPERLIPIDAEMIA
     Dosage: 40MG QHS PO
     Route: 048
     Dates: start: 20091124, end: 20091126

REACTIONS (4)
  - CARDIO-RESPIRATORY ARREST [None]
  - HYPERTENSION [None]
  - MENTAL STATUS CHANGES [None]
  - MYOGLOBIN BLOOD INCREASED [None]
